FAERS Safety Report 6135937-9 (Version None)
Quarter: 2009Q1

REPORT INFORMATION
  Report Type: 
  Country: None (occurrence: None)
  Receive Date: 20090329
  Receipt Date: 20080312
  Transmission Date: 20090719
  Serious: No
  Sender: FDA-Public Use
  Company Number: US-BAUSCH-2008BL001117

PATIENT
  Age: 63 Year
  Sex: Male

DRUGS (2)
  1. ALREX [Suspect]
     Indication: CONJUNCTIVITIS ALLERGIC
     Route: 047
     Dates: start: 20080310
  2. ADVANCED EYE RELIEF/DRY EYE/REJUVENATION PF LUBRICANT EYE DROPS [Concomitant]
     Indication: KERATOCONJUNCTIVITIS SICCA
     Route: 047

REACTIONS (3)
  - GLOSSITIS [None]
  - GLOSSODYNIA [None]
  - OROPHARYNGEAL PAIN [None]
